FAERS Safety Report 8033226-9 (Version None)
Quarter: 2012Q1

REPORT INFORMATION
  Report Type: 
  Country: None (occurrence: None)
  Receive Date: 20120110
  Receipt Date: 20120104
  Transmission Date: 20120608
  Serious: Yes (Other)
  Sender: FDA-Public Use
  Company Number: US-SANOFI-AVENTIS-2011SA079152

PATIENT
  Age: 72 Year
  Sex: Female
  Weight: 88 kg

DRUGS (4)
  1. PLAVIX [Suspect]
     Route: 048
     Dates: start: 20111203
  2. PLAVIX [Suspect]
     Route: 048
     Dates: start: 20111203
  3. PLAVIX [Suspect]
     Indication: STENT PLACEMENT
     Route: 048
     Dates: start: 20020501, end: 20111123
  4. PLAVIX [Suspect]
     Route: 048
     Dates: start: 20020501, end: 20111123

REACTIONS (4)
  - ARTERIAL OCCLUSIVE DISEASE [None]
  - SINUSITIS [None]
  - EPISTAXIS [None]
  - BODY HEIGHT DECREASED [None]
